FAERS Safety Report 8359390-X (Version None)
Quarter: 2012Q2

REPORT INFORMATION
  Report Type: 
  Country: None (occurrence: None)
  Receive Date: 20120515
  Receipt Date: 20120507
  Transmission Date: 20120825
  Serious: Yes (Hospitalization)
  Sender: FDA-Public Use
  Company Number: US-US-EMD SERONO, INC.-7131114

PATIENT
  Sex: Female

DRUGS (1)
  1. REBIF [Suspect]
     Indication: PRODUCT USED FOR UNKNOWN INDICATION
     Route: 058
     Dates: start: 20110615

REACTIONS (5)
  - INJECTION SITE ERYTHEMA [None]
  - GASTRIC ULCER HAEMORRHAGE [None]
  - IMPAIRED GASTRIC EMPTYING [None]
  - HAEMATOCRIT DECREASED [None]
  - BLOOD IRON DECREASED [None]
